FAERS Safety Report 4913710-4 (Version None)
Quarter: 2006Q1

REPORT INFORMATION
  Report Type: 
  Country: None (occurrence: None)
  Receive Date: 20060216
  Receipt Date: 20060203
  Transmission Date: 20060701
  Serious: Yes (Hospitalization)
  Sender: FDA-Public Use
  Company Number: PHEH2006US01703

PATIENT
  Age: 58 Year
  Sex: Male

DRUGS (2)
  1. ZELNORM [Suspect]
     Indication: ILEUS
     Dosage: 6 MG, BID
     Route: 048
     Dates: start: 20060120, end: 20060202
  2. REGLAN                                  /USA/ [Concomitant]

REACTIONS (1)
  - INTESTINAL OPERATION [None]
